FAERS Safety Report 16716109 (Version 1)
Quarter: 2019Q4

REPORT INFORMATION
  Report Type: Spontaneous
  Country: US (occurrence: US)
  Receive Date: 20190817
  Receipt Date: 20190817
  Transmission Date: 20200122
  Serious: Yes (Disabling)
  Sender: FDA-Public Use
  Company Number: None

PATIENT
  Age: 60 Year
  Sex: Male
  Weight: 76.5 kg

DRUGS (8)
  1. ASPIRIN. [Concomitant]
     Active Substance: ASPIRIN
  2. TUMERIC [Concomitant]
     Active Substance: HERBALS\TURMERIC
  3. LIPITOR [Suspect]
     Active Substance: ATORVASTATIN CALCIUM
  4. FISH OIL [Concomitant]
     Active Substance: FISH OIL
  5. COQ10 [Concomitant]
     Active Substance: UBIDECARENONE
  6. BRILINTA [Concomitant]
     Active Substance: TICAGRELOR
  7. MAGNESIUM [Concomitant]
     Active Substance: MAGNESIUM
  8. VIT D [Concomitant]
     Active Substance: VITAMIN D NOS

REACTIONS (6)
  - Mobility decreased [None]
  - Joint swelling [None]
  - Musculoskeletal pain [None]
  - Gout [None]
  - Myopathy [None]
  - Osteoarthritis [None]

NARRATIVE: CASE EVENT DATE: 20190628
